FAERS Safety Report 4816679-6 (Version None)
Quarter: 2005Q4

REPORT INFORMATION
  Report Type: 
  Country: None (occurrence: None)
  Receive Date: 20051031
  Receipt Date: 20051031
  Transmission Date: 20060501
  Serious: Yes (Death)
  Sender: FDA-Public Use
  Company Number: None

PATIENT
  Sex: Male
  Weight: 86.1834 kg

DRUGS (1)
  1. SYMBYAX [Suspect]
     Indication: BIPOLAR DISORDER
     Dosage: ONCE DAILY
     Dates: start: 20050912, end: 20050914

REACTIONS (1)
  - COMPLETED SUICIDE [None]
